FAERS Safety Report 5893626-X (Version None)
Quarter: 2008Q3

REPORT INFORMATION
  Report Type: 
  Country: None (occurrence: None)
  Receive Date: 20080923
  Receipt Date: 20040924
  Transmission Date: 20090109
  Serious: No
  Sender: FDA-Public Use
  Company Number: US-ASTRAZENECA-2007UW22362

PATIENT
  Age: 67 Year
  Sex: Female
  Weight: 78.9 kg

DRUGS (3)
  1. SEROQUEL [Suspect]
     Indication: DEPRESSION
     Route: 048
     Dates: start: 20010101
  2. SEROQUEL [Suspect]
     Route: 048
     Dates: start: 20040101
  3. ESTRACE [Concomitant]

REACTIONS (5)
  - ALOPECIA [None]
  - FOOD CRAVING [None]
  - HYPOTHYROIDISM [None]
  - SURGERY [None]
  - WEIGHT INCREASED [None]
